FAERS Safety Report 5194853-X (Version None)
Quarter: 2006Q4

REPORT INFORMATION
  Report Type: 
  Country: None (occurrence: None)
  Receive Date: 20061229
  Receipt Date: 20061130
  Transmission Date: 20070319
  Serious: Yes (Life-Threatening)
  Sender: FDA-Public Use
  Company Number: HQWYE000101DEC06

PATIENT
  Age: 55 Year
  Sex: Female

DRUGS (4)
  1. ETANERCEPT [Suspect]
     Indication: RHEUMATOID ARTHRITIS
     Route: 058
  2. METHOTREXATE [Concomitant]
     Dosage: UNKNOWN
     Route: 065
  3. PREDNISOLONE [Concomitant]
     Dosage: UNKNOWN
     Route: 065
  4. NSAIDS [Concomitant]
     Route: 065

REACTIONS (9)
  - ACID FAST BACILLI INFECTION [None]
  - ADENOVIRAL UPPER RESPIRATORY INFECTION [None]
  - BLOOD ALBUMIN DECREASED [None]
  - LUPUS PNEUMONITIS [None]
  - PLEURAL EFFUSION [None]
  - PNEUMONIA [None]
  - PULMONARY HAEMORRHAGE [None]
  - SYSTEMIC LUPUS ERYTHEMATOSUS [None]
  - THROMBOCYTOPENIA [None]
